FAERS Safety Report 16045806 (Version 1)
Quarter: 2019Q1

REPORT INFORMATION
  Report Type: Spontaneous
  Country: CN (occurrence: CN)
  Receive Date: 20190307
  Receipt Date: 20190307
  Transmission Date: 20190418
  Serious: Yes (Death, Life-Threatening, Other)
  Sender: FDA-Public Use
  Company Number: CN-DRREDDYS-USA/CHN/19/0108475

PATIENT
  Age: 72 Year
  Sex: Male

DRUGS (6)
  1. ACETYLSALICYLIC ACID [Suspect]
     Active Substance: ASPIRIN
     Indication: PROPHYLAXIS
     Route: 065
  2. CLOPIDOGREL BISULFATE 75 MG [Suspect]
     Active Substance: CLOPIDOGREL BISULFATE
     Indication: PROPHYLAXIS
     Route: 065
  3. ACETYLSALICYLIC ACID [Suspect]
     Active Substance: ASPIRIN
     Route: 065
  4. HEPARIN [Concomitant]
     Active Substance: HEPARIN SODIUM
     Indication: PRODUCT USED FOR UNKNOWN INDICATION
  5. CLOPIDOGREL BISULFATE 75 MG [Suspect]
     Active Substance: CLOPIDOGREL BISULFATE
     Dosage: CUMULATIVE DOSE
     Route: 065
  6. LANSOPRAZOLE DELAYED-RELEASE CAPSULES [Concomitant]
     Active Substance: LANSOPRAZOLE
     Indication: PROPHYLAXIS
     Route: 065

REACTIONS (3)
  - Ventricular fibrillation [Fatal]
  - Sudden cardiac death [Fatal]
  - Upper gastrointestinal haemorrhage [Fatal]
